FAERS Safety Report 4898162-5 (Version None)
Quarter: 2006Q1

REPORT INFORMATION
  Report Type: 
  Country: None (occurrence: None)
  Receive Date: 20060127
  Receipt Date: 20060111
  Transmission Date: 20060701
  Serious: Yes (Hospitalization, Disabling)
  Sender: FDA-Public Use
  Company Number: 408618

PATIENT
  Age: 15 Year
  Sex: Female
  Weight: 55.8 kg

DRUGS (2)
  1. ACCUTANE [Suspect]
     Indication: ACNE
     Dosage: 20 MG DAILY ORAL
     Route: 048
     Dates: start: 20020105, end: 20050714
  2. VALTREX [Concomitant]

REACTIONS (21)
  - ANHEDONIA [None]
  - ANXIETY [None]
  - ARTHRITIS [None]
  - AUTOIMMUNE HEPATITIS [None]
  - CONDITION AGGRAVATED [None]
  - DRY EYE [None]
  - DRY SKIN [None]
  - GASTROINTESTINAL DISORDER [None]
  - HAEMATOCHEZIA [None]
  - HEADACHE [None]
  - HEPATOCELLULAR DAMAGE [None]
  - INJURY [None]
  - LIGAMENT CALCIFICATION [None]
  - LIP DRY [None]
  - MUSCULOSKELETAL DISCOMFORT [None]
  - MYALGIA [None]
  - PARALYSIS [None]
  - RECTAL HAEMORRHAGE [None]
  - SLEEP DISORDER [None]
  - SOMNOLENCE [None]
  - TENDON CALCIFICATION [None]
